FAERS Safety Report 4932158-X (Version None)
Quarter: 2006Q1

REPORT INFORMATION
  Report Type: 
  Country: None (occurrence: None)
  Receive Date: 20060303
  Receipt Date: 20060227
  Transmission Date: 20060701
  Serious: Yes (Death)
  Sender: FDA-Public Use
  Company Number: CA-ROCHE-437992

PATIENT
  Age: 24 Year
  Sex: Male

DRUGS (1)
  1. ACCUTANE [Suspect]
     Indication: ACNE
     Route: 048

REACTIONS (1)
  - COMPLETED SUICIDE [None]
